FAERS Safety Report 12111403 (Version 3)
Quarter: 2016Q3

REPORT INFORMATION
  Report Type: Spontaneous
  Country: JP (occurrence: JP)
  Receive Date: 20160224
  Receipt Date: 20160830
  Transmission Date: 20161109
  Serious: Yes (Other)
  Sender: FDA-Public Use
  Company Number: JP-ELI_LILLY_AND_COMPANY-JP201602007241

PATIENT
  Age: 71 Year
  Sex: Male

DRUGS (6)
  1. DIFFERIN [Concomitant]
     Active Substance: ADAPALENE
     Indication: PROPHYLAXIS
     Dosage: UNK UNK, UNKNOWN
     Route: 061
  2. RINDERON VG [Concomitant]
     Active Substance: BETAMETHASONE VALERATE\GENTAMICIN SULFATE
     Indication: PROPHYLAXIS
     Dosage: UNK UNK, UNKNOWN
     Route: 061
  3. HIRUDOID                           /00723701/ [Concomitant]
     Active Substance: PENTOSAN POLYSULFATE SODIUM
     Indication: PROPHYLAXIS
     Dosage: UNK UNK, UNKNOWN
     Route: 061
  4. MINOCYCLINE                        /00232402/ [Concomitant]
     Indication: PROPHYLAXIS
     Dosage: UNK UNK, UNKNOWN
     Route: 048
  5. ERBITUX [Suspect]
     Active Substance: CETUXIMAB
     Indication: OROPHARYNGEAL CANCER
     Dosage: 400 MG/M2, WEEKLY (1/W)
     Route: 042
     Dates: start: 20150522
  6. ERBITUX [Suspect]
     Active Substance: CETUXIMAB
     Dosage: 250 MG/M2, WEEKLY (1/W)
     Route: 042
     Dates: start: 20150529, end: 201507

REACTIONS (9)
  - Dysphagia [Recovered/Resolved]
  - Aspiration [Recovered/Resolved]
  - Dry mouth [Recovered/Resolved]
  - Dermatitis acneiform [Recovered/Resolved]
  - Dysgeusia [Recovered/Resolved]
  - Stomatitis [Recovered/Resolved]
  - Pneumonia [Recovered/Resolved]
  - Radiation skin injury [Recovered/Resolved]
  - Pharyngeal inflammation [Recovered/Resolved]

NARRATIVE: CASE EVENT DATE: 20150602
